FAERS Safety Report 24985608 (Version 8)
Quarter: 2025Q3

REPORT INFORMATION
  Report Type: Report from Study
  Country: EG (occurrence: EG)
  Receive Date: 20250219
  Receipt Date: 20250730
  Transmission Date: 20251020
  Serious: Yes (Death, Hospitalization, Disabling, Other)
  Sender: NOVARTIS
  Company Number: EG-002147023-NVSC2025EG027662

PATIENT
  Age: 76 Year
  Sex: Female
  Weight: 57 kg

DRUGS (13)
  1. AFINITOR [Suspect]
     Active Substance: EVEROLIMUS
     Indication: Breast cancer metastatic
     Dosage: 10 MG, QD (STRENGTH:10 MG), SHIFT FROM AFINITOR 10 MG TO AFINITOR 5 MG
     Route: 048
     Dates: start: 202406, end: 202407
  2. AFINITOR [Suspect]
     Active Substance: EVEROLIMUS
     Dosage: 5 MG, QD (STRENGTH: 5MG) ONE TABLET ONCE DAILY
     Route: 048
     Dates: start: 202407, end: 202407
  3. KISQALI [Suspect]
     Active Substance: RIBOCICLIB SUCCINATE
     Indication: Breast cancer metastatic
     Dosage: 2 DOSAGE FORM, QD TWO TABLETS ONCE DAILY FOR 21 DAYS AND 1 WEEK OFF
     Route: 048
  4. KISQALI [Suspect]
     Active Substance: RIBOCICLIB SUCCINATE
     Dosage: 200 MG, QD
     Route: 048
  5. KISQALI [Suspect]
     Active Substance: RIBOCICLIB SUCCINATE
     Route: 048
  6. KISQALI [Suspect]
     Active Substance: RIBOCICLIB SUCCINATE
     Dosage: 2 DOSAGE FORM, QD (200 MG, TWO TABLETS ONCE DAILY FOR 21 DAYS AND 1 WEEK OFF)
     Route: 048
     Dates: start: 202502, end: 20250626
  7. KISQALI [Suspect]
     Active Substance: RIBOCICLIB SUCCINATE
     Dosage: 2 DOSAGE FORM, QD FOR 21 DAYS AND ONE WEEK OFF
     Route: 048
  8. IBRANCE [Concomitant]
     Active Substance: PALBOCICLIB
     Indication: Breast cancer metastatic
     Dosage: 100 MG, QD (FOR 3 WEEKS AND 1 OR 2 WEEKS OFF)
     Route: 048
  9. METHYLCOBALAMIN [Concomitant]
     Active Substance: METHYLCOBALAMIN
     Indication: Product used for unknown indication
     Dosage: 1 DOSAGE FORM, QD
     Route: 048
     Dates: start: 202507, end: 20250709
  10. METHYLCOBALAMIN [Concomitant]
     Active Substance: METHYLCOBALAMIN
     Dosage: 1 DOSAGE FORM, QD
     Route: 048
  11. FENTANYL [Concomitant]
     Active Substance: FENTANYL
     Indication: Pain
     Route: 062
     Dates: start: 202505
  12. IVABRADINE [Concomitant]
     Active Substance: IVABRADINE
     Indication: Palpitations
     Route: 048
  13. AROMASIN [Concomitant]
     Active Substance: EXEMESTANE
     Indication: Product used for unknown indication
     Route: 048

REACTIONS (33)
  - Hepatotoxicity [Fatal]
  - Hepatic encephalopathy [Fatal]
  - Disorientation [Fatal]
  - Irritability [Fatal]
  - Agitation [Fatal]
  - Decreased appetite [Fatal]
  - Hypersomnia [Fatal]
  - Faeces discoloured [Fatal]
  - Chromaturia [Fatal]
  - Confusional state [Fatal]
  - Ammonia increased [Fatal]
  - Blood bilirubin increased [Fatal]
  - Pneumonitis [Recovered/Resolved]
  - Fatigue [Recovered/Resolved]
  - Blood glucose increased [Recovered/Resolved]
  - Blood cholesterol increased [Not Recovered/Not Resolved]
  - Vaginal infection [Recovered/Resolved]
  - Ulcer [Recovered/Resolved]
  - Electrocardiogram QT prolonged [Unknown]
  - Pneumonitis [Not Recovered/Not Resolved]
  - Myopathy [Not Recovered/Not Resolved]
  - Neuropathy peripheral [Not Recovered/Not Resolved]
  - Oxygen saturation decreased [Not Recovered/Not Resolved]
  - Hepatic enzyme increased [Not Recovered/Not Resolved]
  - Tumour marker increased [Not Recovered/Not Resolved]
  - Pyrexia [Recovered/Resolved]
  - Lymphocyte count decreased [Recovering/Resolving]
  - Dehydration [Unknown]
  - Diarrhoea [Unknown]
  - Off label use [Unknown]
  - Lethargy [Unknown]
  - Jaundice [Unknown]
  - Hypotension [Unknown]

NARRATIVE: CASE EVENT DATE: 20240601
